FAERS Safety Report 8852306 (Version 1)
Quarter: 2012Q4

REPORT INFORMATION
  Report Type: 
  Country: US (occurrence: US)
  Receive Date: 20121022
  Receipt Date: 20121022
  Transmission Date: 20130627
  Serious: No
  Sender: FDA-Public Use
  Company Number: US-BAUSCH-BL-2012-000850

PATIENT
  Sex: Female

DRUGS (4)
  1. DORZOLAMIDE HYDROCHLORIDE [Suspect]
     Indication: GLAUCOMA
     Dosage: 1 Drop; Daily; Ophthalminc
     Route: 047
     Dates: start: 2010, end: 201209
  2. TIMOLOL MALEATE [Concomitant]
     Indication: GLAUCOMA
     Dosage: 1 Drop; Twice a day; Ophthalmic
     Route: 047
     Dates: start: 2010
  3. TRAVOPROST [Concomitant]
     Indication: GLAUCOMA
     Dosage: 1 Drop; At bedtime; Ophthalmic
     Route: 047
     Dates: start: 1997
  4. CARMELLOSE SODIUM [Concomitant]
     Indication: DRY EYE
     Dosage: 1 Drop; As required; Ophthalmic
     Route: 047

REACTIONS (4)
  - Eyelid exfoliation [Recovered/Resolved]
  - Eye pruritus [Recovered/Resolved]
  - Eye pain [Recovered/Resolved]
  - Ocular hyperaemia [Recovered/Resolved]
